FAERS Safety Report 18693620 (Version 2)
Quarter: 2021Q1

REPORT INFORMATION
  Report Type: Other
  Country: US (occurrence: US)
  Receive Date: 20210104
  Receipt Date: 20210108
  Transmission Date: 20210419
  Serious: Yes (Other)
  Sender: FDA-Public Use
  Company Number: US-ROCHE-2741104

PATIENT
  Age: 33 Year
  Sex: Male

DRUGS (2)
  1. EVRYSDI [Suspect]
     Active Substance: RISDIPLAM
     Indication: SPINAL MUSCULAR ATROPHY
     Dosage: TAKE 5 MG ONCE DAILY PER PI DOSING REQUIREMENTS.
     Route: 048
     Dates: start: 20201114
  2. EVRYSDI [Suspect]
     Active Substance: RISDIPLAM
     Dosage: ONGOING YES
     Route: 048
     Dates: start: 202012

REACTIONS (1)
  - COVID-19 [Recovered/Resolved]

NARRATIVE: CASE EVENT DATE: 20201228
